FAERS Safety Report 10472081 (Version 1)
Quarter: 2014Q3

REPORT INFORMATION
  Report Type: Spontaneous
  Country: JP (occurrence: JP)
  Receive Date: 20140924
  Receipt Date: 20140924
  Transmission Date: 20150326
  Serious: Yes (Other)
  Sender: FDA-Public Use
  Company Number: JP-ACCORD-026039

PATIENT
  Age: 67 Year
  Sex: Female

DRUGS (3)
  1. WARFARIN [Concomitant]
     Active Substance: WARFARIN
     Indication: ANTICOAGULANT THERAPY
  2. PACLITAXEL/PACLITAXEL LIPOSOME [Suspect]
     Active Substance: PACLITAXEL
     Indication: NEOPLASM MALIGNANT
     Dosage: ADMINISTERED ON DAYS 1, 8, 15, 22, 29, AND 36.STOPPED ON DAY 36. RESTARTED FOR 5 MONTHS AT 175 MG/M2
  3. CARBOPLATIN. [Suspect]
     Active Substance: CARBOPLATIN
     Indication: NEOPLASM MALIGNANT
     Dosage: AREA UNDER THE CURVE 2, ON THE SAME DAYS. STOPPED ON DAY 36. RESTARTED FOR 5 MONTHS

REACTIONS (3)
  - Oesophagitis [Unknown]
  - Febrile neutropenia [Unknown]
  - Thrombocytopenia [Unknown]
